FAERS Safety Report 9181013 (Version 2)
Quarter: 2013Q2

REPORT INFORMATION
  Report Type: Spontaneous
  Country: US (occurrence: US)
  Receive Date: 20120531
  Receipt Date: 20130426
  Transmission Date: 20140414
  Serious: Yes (Life-Threatening, Hospitalization, Other)
  Sender: FDA-Public Use
  Company Number: US201201008919

PATIENT
  Age: 61 Year
  Sex: Male

DRUGS (13)
  1. BYETTA PEN DISPOSABLE [Suspect]
     Route: 058
     Dates: start: 200703
  2. BYETTA PEN DISPOSABLE [Suspect]
     Route: 058
     Dates: start: 200703
  3. BENICAR [Concomitant]
  4. LOTREL [Concomitant]
     Dosage: 1DF:5/20 TWICE DAILY
  5. COREG [Concomitant]
  6. CHLORTHALIDONE [Concomitant]
  7. TORSEMIDE [Concomitant]
  8. ACTOS [Concomitant]
  9. AMARYL [Concomitant]
  10. METFORMIN [Concomitant]
  11. LANTUS [Concomitant]
     Dosage: EVERY PRN
  12. ALLOPURINOL [Concomitant]
     Dosage: 100MG TWICE DAILY
  13. CRESTOR [Concomitant]

REACTIONS (3)
  - Pericardial effusion [Recovering/Resolving]
  - Renal tubular necrosis [Recovering/Resolving]
  - Renal failure [Recovering/Resolving]
